FAERS Safety Report 4946219-2 (Version None)
Quarter: 2006Q1

REPORT INFORMATION
  Report Type: 
  Country: None (occurrence: None)
  Receive Date: 20060201
  Receipt Date: 20051219
  Transmission Date: 20060701
  Serious: No
  Sender: FDA-Public Use
  Company Number: 2005PV006048

PATIENT
  Age: 63 Year
  Sex: Female
  Weight: 114.3065 kg

DRUGS (2)
  1. BYETTA [Suspect]
     Indication: DIABETES MELLITUS NON-INSULIN-DEPENDENT
     Dosage: 5 MG BID SC
     Route: 058
     Dates: start: 20051208
  2. STARLIX [Concomitant]

REACTIONS (7)
  - DYSPEPSIA [None]
  - ENERGY INCREASED [None]
  - EPISTAXIS [None]
  - FAECES HARD [None]
  - FLATULENCE [None]
  - NAUSEA [None]
  - STOMACH DISCOMFORT [None]
